FAERS Safety Report 5040480-4 (Version None)
Quarter: 2006Q2

REPORT INFORMATION
  Report Type: 
  Country: None (occurrence: None)
  Receive Date: 20060627
  Receipt Date: 20060627
  Transmission Date: 20061013
  Serious: Yes (Hospitalization, Other)
  Sender: FDA-Public Use
  Company Number: None

PATIENT
  Age: 80 Year
  Sex: Male
  Weight: 60.3284 kg

DRUGS (3)
  1. MEGESTROL ACETATE [Suspect]
     Indication: WEIGHT DECREASED
     Dosage: 800 MG (20 ML) EVERY DAY BY MOUTH
     Route: 048
     Dates: start: 20060321
  2. CARBOPLATIN [Concomitant]
  3. PACLITAXEL [Concomitant]

REACTIONS (3)
  - DYSPNOEA EXACERBATED [None]
  - FATIGUE [None]
  - PULMONARY EMBOLISM [None]
